FAERS Safety Report 10506557 (Version 3)
Quarter: 2015Q1

REPORT INFORMATION
  Report Type: Spontaneous
  Country: SE (occurrence: US)
  Receive Date: 20141009
  Receipt Date: 20150126
  Transmission Date: 20150720
  Serious: Yes (Other)
  Sender: FDA-Public Use
  Company Number: SE-009507513-1410SWE003433

PATIENT
  Age: 48 Year
  Sex: Male

DRUGS (10)
  1. GABAPENTIN. [Concomitant]
     Active Substance: GABAPENTIN
     Indication: EPILEPSY
  2. NAPROXEN. [Concomitant]
     Active Substance: NAPROXEN
     Indication: EPILEPSY
  3. NIZATIDINE. [Concomitant]
     Active Substance: NIZATIDINE
     Indication: EPILEPSY
  4. LAMOTRIGINE. [Concomitant]
     Active Substance: LAMOTRIGINE
     Indication: EPILEPSY
  5. WARFARIN [Concomitant]
     Active Substance: WARFARIN
     Indication: EPILEPSY
  6. TETRACYCLINE [Concomitant]
     Active Substance: TETRACYCLINE
     Indication: EPILEPSY
  7. PHENYTOIN. [Concomitant]
     Active Substance: PHENYTOIN
     Indication: EPILEPSY
  8. PROSCAR [Suspect]
     Active Substance: FINASTERIDE
     Dosage: 5 MG, QD
     Route: 048
  9. CARISOPRODOL. [Concomitant]
     Active Substance: CARISOPRODOL
     Indication: EPILEPSY
  10. FOLIC ACID. [Concomitant]
     Active Substance: FOLIC ACID
     Indication: EPILEPSY

REACTIONS (1)
  - Seizure [Not Recovered/Not Resolved]
